FAERS Safety Report 24764933 (Version 1)
Quarter: 2024Q4

REPORT INFORMATION
  Report Type: Report from Study
  Country: US (occurrence: US)
  Receive Date: 20241223
  Receipt Date: 20241223
  Transmission Date: 20250115
  Serious: Yes (Hospitalization)
  Sender: AMNEAL
  Company Number: US-AMNEAL PHARMACEUTICALS-2024-AMRX-04509

PATIENT
  Sex: Female

DRUGS (8)
  1. CARBIDOPA\LEVODOPA [Suspect]
     Active Substance: CARBIDOPA\LEVODOPA
     Indication: Parkinson^s disease
     Dosage: 23.75-95MG, 4 CAPSULES, 3 /DAY
     Route: 048
  2. CARBIDOPA\LEVODOPA [Suspect]
     Active Substance: CARBIDOPA\LEVODOPA
     Dosage: 23.75-95MG, 3 CAPSULES, 3 /DAY
     Route: 048
     Dates: start: 20230818
  3. CARBIDOPA\LEVODOPA [Suspect]
     Active Substance: CARBIDOPA\LEVODOPA
     Dosage: 23.75-95MG, 4 CAPSULES, 3 /DAY
     Route: 048
  4. CARBIDOPA\LEVODOPA [Suspect]
     Active Substance: CARBIDOPA\LEVODOPA
     Dosage: 23.75-95MG, 5 CAPSULES, 3 /DAY
     Route: 048
  5. CARBIDOPA\LEVODOPA [Suspect]
     Active Substance: CARBIDOPA\LEVODOPA
     Dosage: 23.75-95MG, 4 CAPSULES, 3 /DAY
     Route: 048
  6. CARBIDOPA\LEVODOPA [Suspect]
     Active Substance: CARBIDOPA\LEVODOPA
     Dosage: 23.75-95MG, 3 CAPSULES, 3 /DAY
     Route: 048
     Dates: start: 20240711
  7. CARBIDOPA\LEVODOPA [Suspect]
     Active Substance: CARBIDOPA\LEVODOPA
     Dosage: 23.75-95MG, 3 CAPSULES, 5 /DAY
     Route: 048
  8. CARBIDOPA\LEVODOPA [Suspect]
     Active Substance: CARBIDOPA\LEVODOPA
     Dosage: 23.75-95MG, 4 CAPSULES, 3 /DAY
     Route: 048

REACTIONS (3)
  - Fall [Unknown]
  - Confusional state [Unknown]
  - Product dose omission issue [Unknown]
